FAERS Safety Report 25907608 (Version 1)
Quarter: 2025Q4

REPORT INFORMATION
  Report Type: Spontaneous
  Country: EU (occurrence: EU)
  Receive Date: 20251010
  Receipt Date: 20251010
  Transmission Date: 20260118
  Serious: Yes (Hospitalization)
  Sender: RANBAXY
  Company Number: EU-AFSSAPS-TS2025000614

PATIENT
  Age: 48 Year
  Sex: Male
  Weight: 81 kg

DRUGS (5)
  1. BOSENTAN [Suspect]
     Active Substance: BOSENTAN
     Indication: Systemic scleroderma
     Dosage: 62.5 MILLIGRAM, BID
     Route: 048
     Dates: start: 20250129, end: 20250604
  2. ATORVASTATIN [Suspect]
     Active Substance: ATORVASTATIN
     Indication: Systemic scleroderma
     Dosage: 10 MILLIGRAM, DAILY
     Route: 048
     Dates: end: 20250605
  3. PANTOPRAZOLE [Suspect]
     Active Substance: PANTOPRAZOLE
     Indication: Gastrooesophageal reflux disease
     Dosage: 40 MILLIGRAM, DAILY
     Route: 048
     Dates: end: 20250604
  4. AMITRIPTYLINE [Suspect]
     Active Substance: AMITRIPTYLINE
     Indication: Product used for unknown indication
     Dosage: 75 MILLIGRAM, DAILY
     Route: 048
     Dates: end: 20250605
  5. ISRADIPINE [Suspect]
     Active Substance: ISRADIPINE
     Indication: Systemic scleroderma
     Dosage: 2.5 MILLIGRAM, DAILY
     Route: 048
     Dates: start: 20250129, end: 20250605

REACTIONS (1)
  - Hepatitis [Recovering/Resolving]

NARRATIVE: CASE EVENT DATE: 20250515
